FAERS Safety Report 9699874 (Version 3)
Quarter: 2013Q4

REPORT INFORMATION
  Report Type: Report from Study
  Country: US (occurrence: US)
  Receive Date: 20131121
  Receipt Date: 20131223
  Transmission Date: 20140711
  Serious: Yes (Hospitalization)
  Sender: FDA-Public Use
  Company Number: US-PFIZER INC-2013322532

PATIENT
  Age: 35 Year
  Sex: Male
  Weight: 107.48 kg

DRUGS (1)
  1. TOFACITINIB CITRATE [Suspect]
     Indication: PSORIASIS
     Dosage: 10 MG, 2X/DAY
     Route: 048
     Dates: start: 20121119, end: 20131111

REACTIONS (2)
  - Peritonsillar abscess [Recovered/Resolved]
  - Lymphadenopathy [Recovered/Resolved]
